FAERS Safety Report 14433810 (Version 1)
Quarter: 2018Q1

REPORT INFORMATION
  Report Type: Spontaneous
  Country: CA (occurrence: CA)
  Receive Date: 20180124
  Receipt Date: 20180124
  Transmission Date: 20180509
  Serious: Yes (Death)
  Sender: FDA-Public Use
  Company Number: CA-ACTELION-A-NJ2018-165972

PATIENT
  Age: 67 Year
  Sex: Female

DRUGS (12)
  1. TRACLEER [Suspect]
     Active Substance: BOSENTAN
     Indication: PULMONARY ARTERIAL HYPERTENSION
     Dosage: 125 MG, BID
     Route: 048
     Dates: start: 20100905
  2. SPIRIVA [Concomitant]
     Active Substance: TIOTROPIUM BROMIDE MONOHYDRATE
  3. ADCIRCA [Concomitant]
     Active Substance: TADALAFIL
  4. OXYGEN. [Concomitant]
     Active Substance: OXYGEN
  5. ALEVE [Concomitant]
     Active Substance: NAPROXEN SODIUM
  6. SENNOSIDES A+B [Concomitant]
     Active Substance: SENNOSIDES A AND B
  7. ZENHALE [Concomitant]
     Active Substance: FORMOTEROL FUMARATE\MOMETASONE FUROATE
  8. POLYETHYLENE GLYCOL [Concomitant]
     Active Substance: POLYETHYLENE GLYCOLS
  9. SPIRONOLACTONE. [Concomitant]
     Active Substance: SPIRONOLACTONE
  10. BUPRENORPHINE. [Concomitant]
     Active Substance: BUPRENORPHINE
  11. LASIX [Concomitant]
     Active Substance: FUROSEMIDE
  12. LEVOTHYROXINE. [Concomitant]
     Active Substance: LEVOTHYROXINE

REACTIONS (1)
  - Death [Fatal]

NARRATIVE: CASE EVENT DATE: 20180115
